FAERS Safety Report 6038174-1 (Version None)
Quarter: 2009Q1

REPORT INFORMATION
  Report Type: 
  Country: None (occurrence: None)
  Receive Date: 20090115
  Receipt Date: 20090112
  Transmission Date: 20090719
  Serious: Yes (Other)
  Sender: FDA-Public Use
  Company Number: PHEH2008US11412

PATIENT
  Sex: Female

DRUGS (1)
  1. COMBIPATCH [Suspect]
     Dosage: 50/140
     Route: 062

REACTIONS (2)
  - SUPRAVENTRICULAR EXTRASYSTOLES [None]
  - VENTRICULAR EXTRASYSTOLES [None]
